FAERS Safety Report 6343912-4 (Version None)
Quarter: 2009Q3

REPORT INFORMATION
  Report Type: 
  Country: None (occurrence: None)
  Receive Date: 20090908
  Receipt Date: 20090825
  Transmission Date: 20100115
  Serious: Yes (Other)
  Sender: FDA-Public Use
  Company Number: AU-PFIZER INC-2009245067

PATIENT
  Age: 52 Year

DRUGS (4)
  1. ZELDOX [Suspect]
     Indication: BIPOLAR I DISORDER
     Dosage: 60 MG, 1X/DAY
     Route: 048
     Dates: start: 20090420, end: 20090507
  2. OLANZAPINE [Concomitant]
  3. ANAFRANIL [Concomitant]
     Indication: OBSESSIVE-COMPULSIVE DISORDER
     Dosage: 150 MG, 1X/DAY
     Route: 048
  4. DIAZEPAM [Concomitant]
     Indication: ANXIETY
     Dosage: 1 UNK, UNK
     Route: 048

REACTIONS (1)
  - LOCAL SWELLING [None]
